FAERS Safety Report 16268174 (Version 2)
Quarter: 2019Q2

REPORT INFORMATION
  Report Type: Report from Study
  Country: US (occurrence: US)
  Receive Date: 20190503
  Receipt Date: 20190513
  Transmission Date: 20190711
  Serious: Yes (Hospitalization)
  Sender: FDA-Public Use
  Company Number: US-GILEAD-2019-0405501

PATIENT
  Age: 54 Year
  Sex: Female
  Weight: 95.69 kg

DRUGS (41)
  1. PHENERGAN [Concomitant]
     Active Substance: PROMETHAZINE HYDROCHLORIDE
  2. XANAX [Concomitant]
     Active Substance: ALPRAZOLAM
  3. ELIQUIS [Concomitant]
     Active Substance: APIXABAN
  4. THORAZINE [Concomitant]
     Active Substance: CHLORPROMAZINE
  5. OCEAN SALINE NASAL SPRAY [Concomitant]
     Active Substance: SODIUM CHLORIDE
  6. AMBRISENTAN [Suspect]
     Active Substance: AMBRISENTAN
     Indication: LUNG DISORDER
     Dosage: 10 MG, QD
     Route: 048
  7. KLONOPIN [Concomitant]
     Active Substance: CLONAZEPAM
  8. FLUTICASONE;VILANTEROL [Concomitant]
     Active Substance: FLUTICASONE FUROATE\VILANTEROL TRIFENATATE
  9. FOLVITE [FOLIC ACID] [Concomitant]
  10. WELLCOVORIN [Concomitant]
     Active Substance: LEUCOVORIN CALCIUM
  11. K-DUR [Concomitant]
     Active Substance: POTASSIUM CHLORIDE
  12. SEROQUEL [Concomitant]
     Active Substance: QUETIAPINE FUMARATE
  13. TOPAMAX [Concomitant]
     Active Substance: TOPIRAMATE
  14. ADCIRCA [Concomitant]
     Active Substance: TADALAFIL
  15. ALBUTEROL HFA [Concomitant]
     Active Substance: ALBUTEROL SULFATE
  16. ASPIRIN (E.C.) [Concomitant]
     Active Substance: ASPIRIN
  17. SINGULAIR [Concomitant]
     Active Substance: MONTELUKAST SODIUM
  18. MS CONTIN [Concomitant]
     Active Substance: MORPHINE SULFATE
  19. MIRALAX [Concomitant]
     Active Substance: POLYETHYLENE GLYCOL 3350
  20. REQUIP [Concomitant]
     Active Substance: ROPINIROLE HYDROCHLORIDE
  21. NORCO [Concomitant]
     Active Substance: ACETAMINOPHEN\HYDROCODONE BITARTRATE
  22. HYDROXYZINE [Concomitant]
     Active Substance: HYDROXYZINE HYDROCHLORIDE
  23. METHOTREXATE. [Concomitant]
     Active Substance: METHOTREXATE
  24. ZANAFLEX [Concomitant]
     Active Substance: TIZANIDINE HYDROCHLORIDE
  25. COLACE [Concomitant]
     Active Substance: DOCUSATE SODIUM
  26. LASIX + K [Concomitant]
     Active Substance: FUROSEMIDE\POTASSIUM CHLORIDE
  27. LIDOCAINE. [Concomitant]
     Active Substance: LIDOCAINE
  28. MAGNESIUM OXIDE. [Concomitant]
     Active Substance: MAGNESIUM OXIDE
  29. REMODULIN [Concomitant]
     Active Substance: TREPROSTINIL
  30. BREO ELLIPTA [Concomitant]
     Active Substance: FLUTICASONE FUROATE\VILANTEROL TRIFENATATE
  31. ROXANOL [Concomitant]
     Active Substance: MORPHINE SULFATE
  32. KLOR-CON [Concomitant]
     Active Substance: POTASSIUM CHLORIDE
  33. AZELASTINE. [Concomitant]
     Active Substance: AZELASTINE HYDROCHLORIDE
  34. SENOKOT [Concomitant]
     Active Substance: SENNOSIDES
  35. ZOLOFT [Concomitant]
     Active Substance: SERTRALINE HYDROCHLORIDE
  36. BIOTIN [Concomitant]
     Active Substance: BIOTIN
  37. FLONASE ALLERGY RELIEF [Concomitant]
     Active Substance: FLUTICASONE PROPIONATE
  38. TESSALON [Concomitant]
     Active Substance: BENZONATATE
  39. CYANOCOBALAMIN. [Concomitant]
     Active Substance: CYANOCOBALAMIN
  40. MONODOX [ALBENDAZOLE] [Concomitant]
  41. PROTONIX [OMEPRAZOLE] [Concomitant]
     Active Substance: OMEPRAZOLE

REACTIONS (2)
  - Malaise [Not Recovered/Not Resolved]
  - Intentional dose omission [Recovered/Resolved]
